FAERS Safety Report 9161034 (Version 3)
Quarter: 2013Q2

REPORT INFORMATION
  Report Type: Report from Study
  Country: US (occurrence: US)
  Receive Date: 20130313
  Receipt Date: 20130419
  Transmission Date: 20140414
  Serious: Yes (Other)
  Sender: FDA-Public Use
  Company Number: US-PFIZER INC-2013075316

PATIENT
  Age: 80 Year
  Sex: Female
  Weight: 82 kg

DRUGS (6)
  1. BLINDED CELECOXIB [Suspect]
     Indication: ADENOCARCINOMA OF COLON
     Dosage: 400 MG, 1X/DAY
     Route: 048
     Dates: start: 20120822
  2. BLINDED PLACEBO [Suspect]
     Indication: ADENOCARCINOMA OF COLON
     Dosage: 400 MG, 1X/DAY
     Route: 048
     Dates: start: 20120822
  3. FLUOROURACIL [Suspect]
     Indication: ADENOCARCINOMA OF COLON
     Dosage: 400 MG/M2, IVP ON DAY 1 FOLLOWED BY
     Route: 042
     Dates: start: 20120822
  4. FLUOROURACIL [Suspect]
     Dosage: 2400 MG/M2, IV OVER 46-48 HOURS ON DAY 1
     Route: 042
     Dates: start: 20120822
  5. ELOXATIN [Suspect]
     Indication: COLON CANCER
     Dosage: 85 MG/M2, OVER 2 HOURS ON DAY 1
     Route: 042
     Dates: start: 20120822
  6. LEUCOVORIN CALCIUM [Concomitant]
     Indication: ADENOCARCINOMA OF COLON
     Dosage: 400 MG/M2, IV OVER 2 HOURS ON DAY 1
     Route: 042
     Dates: start: 20120822

REACTIONS (1)
  - Embolism [Not Recovered/Not Resolved]
